FAERS Safety Report 23172329 (Version 1)
Quarter: 2023Q4

REPORT INFORMATION
  Report Type: Spontaneous
  Country: FR (occurrence: FR)
  Receive Date: 20231110
  Receipt Date: 20231110
  Transmission Date: 20240109
  Serious: Yes (Hospitalization, Other)
  Sender: FDA-Public Use
  Company Number: FR-SUN PHARMACEUTICAL INDUSTRIES LTD-2023RR-418073

PATIENT
  Age: 75 Year
  Sex: Male

DRUGS (3)
  1. ACETAMINOPHEN [Suspect]
     Active Substance: ACETAMINOPHEN
     Indication: Analgesic intervention supportive therapy
     Dosage: IF NECESSARY
     Route: 048
     Dates: start: 2022, end: 20230526
  2. LOPERAMIDE [Suspect]
     Active Substance: LOPERAMIDE
     Indication: Faecaloma
     Dosage: UNK
     Route: 048
     Dates: start: 20230518, end: 20230518
  3. IOMERON [Suspect]
     Active Substance: IOMEPROL
     Indication: Computerised tomogram
     Dosage: 1 SINGLE DOSE
     Route: 040
     Dates: start: 20230518, end: 20230518

REACTIONS (2)
  - Dermatitis bullous [Recovered/Resolved]
  - Fixed eruption [Recovered/Resolved]

NARRATIVE: CASE EVENT DATE: 20230520
